FAERS Safety Report 14817077 (Version 1)
Quarter: 2018Q2

REPORT INFORMATION
  Report Type: Spontaneous
  Country: TR (occurrence: TR)
  Receive Date: 20180426
  Receipt Date: 20180426
  Transmission Date: 20180711
  Serious: Yes (Death, Hospitalization)
  Sender: FDA-Public Use
  Company Number: PHHY2018TR068459

PATIENT
  Age: 4 Year
  Sex: Male

DRUGS (2)
  1. BUDESONIDE SANDOZ [Suspect]
     Active Substance: BUDESONIDE
     Indication: ASTHMA
     Route: 055
  2. PROPOFOL. [Suspect]
     Active Substance: PROPOFOL
     Indication: PRODUCT USED FOR UNKNOWN INDICATION
     Route: 065

REACTIONS (7)
  - Hyperthermia malignant [Fatal]
  - Hypotension [Fatal]
  - Metabolic acidosis [Fatal]
  - Hypotonia [Fatal]
  - Pyrexia [Fatal]
  - Hypercapnia [Fatal]
  - Tachycardia [Fatal]
